FAERS Safety Report 8561940 (Version 2)
Quarter: 2012Q4

REPORT INFORMATION
  Report Type: 
  Country: US (occurrence: US)
  Receive Date: 20120515
  Receipt Date: 20120904
  Transmission Date: 20130627
  Serious: Yes (Hospitalization)
  Sender: FDA-Public Use
  Company Number: US-BAYER-2012-045449

PATIENT
  Age: 29 Year
  Sex: Female
  Weight: 72.56 kg

DRUGS (4)
  1. OCELLA [Suspect]
     Indication: CONTRACEPTION
     Dosage: UNK
     Dates: start: 200809, end: 201004
  2. DOXYCYCLINE HYCLATE [Concomitant]
     Dosage: Take 1 capsule
     Dates: start: 20100131
  3. DOXYCYCLINE HYCLATE [Concomitant]
     Dosage: Take 1 capsule
     Dates: start: 20100331
  4. ANTIBIOTICS [Concomitant]
     Route: 042

REACTIONS (3)
  - Cholecystitis [None]
  - Pain [None]
  - Injury [None]
